FAERS Safety Report 11616864 (Version 2)
Quarter: 2015Q4

REPORT INFORMATION
  Report Type: Spontaneous
  Country: RU (occurrence: RU)
  Receive Date: 20151009
  Receipt Date: 20151022
  Transmission Date: 20160304
  Serious: Yes (Life-Threatening, Other)
  Sender: FDA-Public Use
  Company Number: RU-BAYER-2015-433333

PATIENT
  Age: 39 Year
  Sex: Female

DRUGS (8)
  1. VANCOMYCIN [Suspect]
     Active Substance: VANCOMYCIN
     Indication: DEVICE RELATED SEPSIS
  2. MOXIFLOXACIN ORAL [Suspect]
     Active Substance: MOXIFLOXACIN
     Indication: DEVICE RELATED SEPSIS
  3. PENTAMIDINE [Suspect]
     Active Substance: PENTAMIDINE
     Indication: PNEUMONIA
     Dosage: 300 MG, QD
     Route: 042
  4. MOXIFLOXACIN ORAL [Suspect]
     Active Substance: MOXIFLOXACIN
     Indication: PNEUMONIA
     Dosage: 400 MG, QD
  5. PENTAMIDINE [Suspect]
     Active Substance: PENTAMIDINE
     Indication: DEVICE RELATED SEPSIS
     Dosage: 300 MG, QD
     Route: 055
  6. VANCOMYCIN [Suspect]
     Active Substance: VANCOMYCIN
     Indication: PNEUMONIA
     Dosage: 2000 MG, QD
  7. COTRIMOXAZOLE [Suspect]
     Active Substance: SULFAMETHOXAZOLE\TRIMETHOPRIM
     Indication: PNEUMONIA
     Dosage: 120 MG/24HR, UNK
  8. COTRIMOXAZOLE [Suspect]
     Active Substance: SULFAMETHOXAZOLE\TRIMETHOPRIM
     Indication: DEVICE RELATED SEPSIS

REACTIONS (23)
  - Respiratory arrest [Recovered/Resolved]
  - Loss of consciousness [Recovered/Resolved]
  - Bradycardia [Recovered/Resolved]
  - Cardiac failure [Recovering/Resolving]
  - Pericardial effusion [Recovering/Resolving]
  - Nausea [None]
  - Pancytopenia [None]
  - Ventricular tachycardia [Recovered/Resolved]
  - Cardiovascular disorder [Recovered/Resolved]
  - Drug ineffective [None]
  - Hypotension [Recovering/Resolving]
  - Vomiting [None]
  - Skin discolouration [None]
  - Electrocardiogram QT prolonged [Recovered/Resolved]
  - Retrograde amnesia [Recovered/Resolved]
  - Polyserositis [Recovering/Resolving]
  - Hypotension [Recovered/Resolved]
  - Orthopnoea [Recovered/Resolved]
  - Ejection fraction decreased [Recovering/Resolving]
  - Oedema [Recovering/Resolving]
  - Renal failure [None]
  - Dyspnoea [Recovered/Resolved]
  - Myocarditis infectious [Recovering/Resolving]

NARRATIVE: CASE EVENT DATE: 20140606
